FAERS Safety Report 24391975 (Version 2)
Quarter: 2024Q4

REPORT INFORMATION
  Report Type: Spontaneous
  Country: US (occurrence: US)
  Receive Date: 20241003
  Receipt Date: 20241203
  Transmission Date: 20250115
  Serious: No
  Sender: BAYER HEALTHCARE LLC
  Company Number: US-BAYER-2024A140678

PATIENT
  Age: 65 Year
  Sex: Female

DRUGS (1)
  1. MIRALAX [Suspect]
     Active Substance: POLYETHYLENE GLYCOL 3350
     Indication: Gastrointestinal disorder
     Dosage: 1 PACKET A DAY DOSE
     Route: 048
     Dates: end: 20240930

REACTIONS (3)
  - Illness [Recovered/Resolved]
  - Product use issue [Unknown]
  - Product use complaint [None]
